FAERS Safety Report 8397472-7 (Version None)
Quarter: 2012Q2

REPORT INFORMATION
  Report Type: 
  Country: None (occurrence: None)
  Receive Date: 20120529
  Receipt Date: 20120529
  Transmission Date: 20120825
  Serious: Yes (Other)
  Sender: FDA-Public Use
  Company Number: None

PATIENT
  Age: 76 Year
  Sex: Male
  Weight: 77.1115 kg

DRUGS (1)
  1. WALGREENS EAR WAX REMOVAL KIT 6.5% WALGREENS [Suspect]
     Indication: CERUMEN IMPACTION
     Dosage: 3 - 4 DROPS 3 X DAILY OTHER
     Route: 050
     Dates: start: 20120523, end: 20120524

REACTIONS (2)
  - PRURITUS GENERALISED [None]
  - BURNING SENSATION [None]
